FAERS Safety Report 18543177 (Version 7)
Quarter: 2024Q1

REPORT INFORMATION
  Report Type: Report from Study
  Country: SE (occurrence: SE)
  Receive Date: 20201125
  Receipt Date: 20240119
  Transmission Date: 20240410
  Serious: Yes (Other)
  Sender: FDA-Public Use
  Company Number: SE-ABBVIE-20K-150-3660638-00

PATIENT
  Sex: Female
  Weight: 47 kg

DRUGS (23)
  1. CARBIDOPA\LEVODOPA [Suspect]
     Active Substance: CARBIDOPA\LEVODOPA
     Indication: Parkinson^s disease
     Dosage: MORNING DOSE DECREASED FROM 3ML TO 2ML
     Route: 050
     Dates: start: 20211111
  2. CARBIDOPA\LEVODOPA [Suspect]
     Active Substance: CARBIDOPA\LEVODOPA
     Dosage: EXTRA DOSE INCREASED FROM 1.3 ML TO 2.0 ML.
     Route: 050
     Dates: start: 20210527
  3. CARBIDOPA\LEVODOPA [Suspect]
     Active Substance: CARBIDOPA\LEVODOPA
     Dosage: CURRENT DOSAGE: TAKES 4-5 EXTRA DOSES PER DAY.?CONTINUOUS DOSE DAY INCREASED FROM 4.2ML/H TO 4.4 ...
     Route: 050
     Dates: start: 20221114
  4. CARBIDOPA\LEVODOPA [Suspect]
     Active Substance: CARBIDOPA\LEVODOPA
     Dosage: TAKES ABOUT 3-4 EXTRA DOSES DAILY.
     Route: 050
  5. CARBIDOPA\LEVODOPA [Suspect]
     Active Substance: CARBIDOPA\LEVODOPA
     Dosage: CONTINUOUS DOSE AT 12-22 O^CLOCK INCREASED TO 5.5 ML/H
     Route: 050
     Dates: start: 20240116
  6. CARBIDOPA\LEVODOPA [Suspect]
     Active Substance: CARBIDOPA\LEVODOPA
     Dosage: CURRENT DOSAGE: MORNING DOSE: 3ML, CONTINUOUS DOSE DAY: 4.1 ML/H.
     Route: 050
     Dates: start: 20210527
  7. CARBIDOPA\LEVODOPA [Suspect]
     Active Substance: CARBIDOPA\LEVODOPA
     Dosage: CURRENT DOSAGE: CONTINUOUS DOSE DAY: 4.8 ML/H. CONTINUOUS DOSE NIGHT: 3.4 ML/H. EXTRA DOSE: 1.6 ML
     Route: 050
     Dates: start: 20230503
  8. CARBIDOPA\LEVODOPA [Suspect]
     Active Substance: CARBIDOPA\LEVODOPA
     Dosage: CURRENT DOSAGE: TAKES 4-5 EXTRA DOSES PER DAY.
     Route: 050
     Dates: start: 20221114
  9. CARBIDOPA\LEVODOPA [Suspect]
     Active Substance: CARBIDOPA\LEVODOPA
     Dosage: CONTINUOUS DOSE NIGHT INCREASED FROM 3.0ML/H TO 3.2ML/H.
     Route: 050
     Dates: start: 20220518
  10. CARBIDOPA\LEVODOPA [Suspect]
     Active Substance: CARBIDOPA\LEVODOPA
     Dosage: CURRENT DOSAGE: MORNING DOSE 2.5ML
     Route: 050
     Dates: start: 20220518
  11. CARBIDOPA\LEVODOPA [Suspect]
     Active Substance: CARBIDOPA\LEVODOPA
     Dosage: CURRENT DOSAGE: MORNING DOSE: 2 ML, CONTINUOUS DOSE DAY: 4.0 ML/H
     Route: 050
     Dates: start: 20201119
  12. CARBIDOPA\LEVODOPA [Suspect]
     Active Substance: CARBIDOPA\LEVODOPA
     Dosage: CONTINUOUS DOSE NIGHT: 2.9 ML/H, EXTRA DOSE: 1.0 ML. THERAPY DURATION: REMAINS AT 24H
     Route: 050
     Dates: start: 20201119
  13. CARBIDOPA\LEVODOPA [Suspect]
     Active Substance: CARBIDOPA\LEVODOPA
     Dosage: CURRENT DOSAGE: CONTINUOUS DOSE NIGHT 4.1 ML/H, EXTRA DOSE 2.0 ML (EVERY 30 MIN)
     Route: 050
  14. CARBIDOPA\LEVODOPA [Suspect]
     Active Substance: CARBIDOPA\LEVODOPA
     Route: 050
     Dates: start: 20190423
  15. CARBIDOPA\LEVODOPA [Suspect]
     Active Substance: CARBIDOPA\LEVODOPA
     Dosage: CURRENT DOSAGE: CONTINUOUS DOSE 14.00-22.00: 4.0ML/H
     Route: 050
     Dates: start: 20211111
  16. CARBIDOPA\LEVODOPA [Suspect]
     Active Substance: CARBIDOPA\LEVODOPA
     Dosage: CONTINUOUS DOSE DECREASED FROM 4.1ML/H TO 4.0ML/H.
     Route: 050
     Dates: start: 20220518
  17. CARBIDOPA\LEVODOPA [Suspect]
     Active Substance: CARBIDOPA\LEVODOPA
     Dosage: CURRENT DOSAGE: MORNING DOSE 2.5 ML, CONTINUOUS DOSE AT 7-12 O^CLOCK 5.1 ML/H
     Route: 050
  18. CARBIDOPA\LEVODOPA [Suspect]
     Active Substance: CARBIDOPA\LEVODOPA
     Dosage: TAKES ABOUT 3-4 EXTRA DOSES DAILY.
     Route: 050
  19. CARBIDOPA\LEVODOPA [Suspect]
     Active Substance: CARBIDOPA\LEVODOPA
     Dosage: CONTINUOUS DOSE DAY INCREASED FROM 4.2ML/H TO 4.4 ML/H. EXTRA DOSE DECREASED FROM 2.0 ML TO 1.5 ML
     Route: 050
     Dates: start: 20221114
  20. CARBIDOPA\LEVODOPA [Suspect]
     Active Substance: CARBIDOPA\LEVODOPA
     Dosage: CONTINUOUS DOSE 08.00-14.00 DECREASED FROM 4.0 ML/H TO 3.8ML/H
     Route: 050
     Dates: start: 20211111
  21. CARBIDOPA\LEVODOPA [Suspect]
     Active Substance: CARBIDOPA\LEVODOPA
     Dosage: CURRENT DOSAGE: CONTINUOUS DOSE 14.00-22.00: 4.0ML/H
     Route: 050
  22. CARBIDOPA\LEVODOPA [Suspect]
     Active Substance: CARBIDOPA\LEVODOPA
     Dosage: CONTINUOUS DOSE NIGHT INCREASED FROM 3.0ML/H TO 3.2ML/H.
     Route: 050
     Dates: start: 20220518
  23. CARBIDOPA\LEVODOPA [Suspect]
     Active Substance: CARBIDOPA\LEVODOPA
     Dosage: CONTINUOUS DOSE NIGHT DECREASED FROM 2.8 ML/H TO 2.5ML/H.
     Route: 050
     Dates: start: 20211111

REACTIONS (3)
  - Spinal stenosis [Recovered/Resolved]
  - Pain in extremity [Recovered/Resolved]
  - Excessive granulation tissue [Not Recovered/Not Resolved]
